FAERS Safety Report 5736251-3 (Version None)
Quarter: 2008Q2

REPORT INFORMATION
  Report Type: 
  Country: None (occurrence: None)
  Receive Date: 20080513
  Receipt Date: 20080429
  Transmission Date: 20081010
  Serious: Yes (Hospitalization, Other)
  Sender: FDA-Public Use
  Company Number: SE-MERCK-0804SWE00046

PATIENT
  Age: 85 Year
  Sex: Female

DRUGS (13)
  1. PRIMAXIN [Suspect]
     Indication: INFECTION
     Route: 041
     Dates: start: 20071031, end: 20071104
  2. ISOPTIN SR [Concomitant]
     Route: 065
  3. [THERAPY UNSPECIFIED] [Concomitant]
     Route: 065
  4. [THERAPY UNSPECIFIED] [Concomitant]
     Route: 065
  5. NITROMEX [Concomitant]
     Route: 065
  6. ACETAMINOPHEN [Concomitant]
     Route: 065
  7. DIAZEPAM [Concomitant]
     Route: 065
  8. GAVISCON LIQUID ANTACID [Concomitant]
     Route: 065
  9. PULMICORT [Concomitant]
     Route: 065
  10. CLARITIN [Concomitant]
     Route: 065
  11. LACTULOSE [Concomitant]
     Route: 065
  12. BRICANYL [Concomitant]
     Route: 065
  13. ARTELAC [Concomitant]
     Route: 065

REACTIONS (2)
  - CONFUSIONAL STATE [None]
  - HIP FRACTURE [None]
